FAERS Safety Report 24724605 (Version 2)
Quarter: 2024Q4

REPORT INFORMATION
  Report Type: Spontaneous
  Country: US (occurrence: US)
  Receive Date: 20241212
  Receipt Date: 20241231
  Transmission Date: 20250114
  Serious: Yes (Other)
  Sender: TEVA
  Company Number: US-TEVA-VS-3272159

PATIENT
  Age: 15 Year
  Sex: Female

DRUGS (5)
  1. FENTANYL [Suspect]
     Active Substance: FENTANYL
     Indication: Drug abuse
     Route: 065
  2. OXYCODONE [Suspect]
     Active Substance: OXYCODONE
     Indication: Drug abuse
     Route: 065
  3. DIAZEPAM [Concomitant]
     Active Substance: DIAZEPAM
     Indication: Anxiety
     Route: 065
  4. ALPRAZOLAM [Concomitant]
     Active Substance: ALPRAZOLAM
     Indication: Anxiety
     Route: 065
  5. HYDROCODONE [Suspect]
     Active Substance: HYDROCODONE
     Indication: Pain
     Route: 065

REACTIONS (8)
  - Drug use disorder [Recovering/Resolving]
  - Drug abuse [Unknown]
  - Drug withdrawal syndrome [Recovering/Resolving]
  - Pain [Recovering/Resolving]
  - Choking [Recovering/Resolving]
  - Cold sweat [Recovering/Resolving]
  - Hyperhidrosis [Recovering/Resolving]
  - Screaming [Recovering/Resolving]
